FAERS Safety Report 13393404 (Version 1)
Quarter: 2017Q1

REPORT INFORMATION
  Report Type: Spontaneous
  Country: US (occurrence: US)
  Receive Date: 20170331
  Receipt Date: 20170331
  Transmission Date: 20170429
  Serious: No
  Sender: FDA-Public Use
  Company Number: US-SEPTODONT-201603543

PATIENT
  Age: 47 Year
  Sex: Male

DRUGS (6)
  1. SEPTOCAINE AND EPINEPHRINE [Suspect]
     Active Substance: ARTICAINE HYDROCHLORIDE\EPINEPHRINE BITARTRATE
     Indication: LOCAL ANAESTHESIA
     Dosage: INFILTRATION IN AMSA HEALTHY TISSUE WITH 1/2^ 27G NEEDLE. TOTAL 4 CARTRIDGES WITH DRUG #1, 2, 3 + 4
     Route: 004
     Dates: start: 20160622, end: 20160622
  2. BENZOCAINE. [Concomitant]
     Active Substance: BENZOCAINE
     Dates: start: 20160622
  3. SEPTOCAINE AND EPINEPHRINE [Suspect]
     Active Substance: ARTICAINE HYDROCHLORIDE\EPINEPHRINE BITARTRATE
     Indication: LOCAL ANAESTHESIA
     Dosage: INFILTRATION IN AMSA HEALTHY TISSUE WITH 1/2^ 27G NEEDLE. TOTAL 4 CARTRIDGES WITH DRUG #1, 2, 3 + 4
     Route: 004
     Dates: start: 20160622, end: 20160622
  4. SEPTOCAINE AND EPINEPHRINE [Suspect]
     Active Substance: ARTICAINE HYDROCHLORIDE\EPINEPHRINE BITARTRATE
     Indication: LOCAL ANAESTHESIA
     Dosage: INFILTRATION IN AMSA HEALTHY TISSUE WITH 1/2^ 27G NEEDLE. TOTAL 4 CARTRIDGES WITH DRUG #1, 2, 3 + 4
     Route: 004
     Dates: start: 20160622, end: 20160622
  5. SEPTOCAINE AND EPINEPHRINE [Suspect]
     Active Substance: ARTICAINE HYDROCHLORIDE\EPINEPHRINE BITARTRATE
     Indication: LOCAL ANAESTHESIA
     Dosage: INFILTRATION IN AMSA HEALTHY TISSUE WITH 1/2^ 27G NEEDLE. TOTAL 4 CARTRIDGES WITH DRUG #1, 2, 3 + 4
     Route: 004
     Dates: start: 20160622, end: 20160622
  6. LIDOCAINE HYDROCHLORIDE 2% WITH EPINEPHRINE 1:100,000 INJECTION [Suspect]
     Active Substance: EPINEPHRINE\LIDOCAINE HYDROCHLORIDE
     Indication: LOCAL ANAESTHESIA
     Dosage: INFILTRATION IN AMSA HEALTHY TISSUE WITH 1/2^ 27G NEEDLE. UNKNOWN DOSE
     Route: 004
     Dates: start: 20160622, end: 20160622

REACTIONS (2)
  - Mouth ulceration [Unknown]
  - Hypoaesthesia [Unknown]

NARRATIVE: CASE EVENT DATE: 20160622
